FAERS Safety Report 23783095 (Version 5)
Quarter: 2024Q3

REPORT INFORMATION
  Report Type: Spontaneous
  Country: US (occurrence: None)
  Receive Date: 20240425
  Receipt Date: 20240717
  Transmission Date: 20241017
  Serious: Yes (Other)
  Sender: ASTRAZENECA
  Company Number: 2024A093068

PATIENT
  Age: 39 Year
  Sex: Female

DRUGS (3)
  1. FASENRA [Suspect]
     Active Substance: BENRALIZUMAB
     Indication: Asthma
     Dosage: 30.0MG/ML UNKNOWN
     Route: 058
     Dates: start: 202301
  2. FASENRA [Suspect]
     Active Substance: BENRALIZUMAB
     Indication: Asthma
     Dosage: 30.0MG/ML UNKNOWN
     Route: 058
     Dates: start: 20221227
  3. RIVAROXABAN [Suspect]
     Active Substance: RIVAROXABAN

REACTIONS (10)
  - Portal vein thrombosis [Unknown]
  - Postoperative thrombosis [Unknown]
  - Injection site pain [Unknown]
  - Drug hypersensitivity [Unknown]
  - Injection site haemorrhage [Unknown]
  - Haemorrhage [Unknown]
  - Asthma [Unknown]
  - Product dose omission issue [Unknown]
  - Needle issue [Unknown]
  - Drug ineffective [Unknown]
